FAERS Safety Report 15679891 (Version 1)
Quarter: 2018Q4

REPORT INFORMATION
  Report Type: Report from Study
  Country: US (occurrence: US)
  Receive Date: 20181203
  Receipt Date: 20181203
  Transmission Date: 20190205
  Serious: Yes (Hospitalization, Other)
  Sender: FDA-Public Use
  Company Number: US-GILEAD-2018-0377753

PATIENT
  Age: 57 Year
  Sex: Female

DRUGS (10)
  1. ADCIRCA [Concomitant]
     Active Substance: TADALAFIL
  2. HEMOCYTE [Concomitant]
  3. AMBRISENTAN [Suspect]
     Active Substance: AMBRISENTAN
     Indication: PULMONARY HYPERTENSION
     Dosage: 5 MG, QD
     Route: 065
     Dates: start: 20140109
  4. DILTIAZEM. [Concomitant]
     Active Substance: DILTIAZEM
  5. DOXEPIN [Concomitant]
     Active Substance: DOXEPIN
  6. OMEPRAZOLE. [Concomitant]
     Active Substance: OMEPRAZOLE
  7. MESALAMINE. [Concomitant]
     Active Substance: MESALAMINE
  8. SUCRALFATE. [Concomitant]
     Active Substance: SUCRALFATE
  9. VENTAVIS [Concomitant]
     Active Substance: ILOPROST
  10. MYCOPHENOLATE [Concomitant]
     Active Substance: MYCOPHENOLIC ACID

REACTIONS (7)
  - Pulmonary arterial hypertension [Unknown]
  - Product dose omission [Unknown]
  - Palpitations [Unknown]
  - Vomiting [Unknown]
  - Gastric disorder [Unknown]
  - Asthenia [Unknown]
  - Fatigue [Unknown]

NARRATIVE: CASE EVENT DATE: 20170502
